FAERS Safety Report 7251302-5 (Version None)
Quarter: 2011Q1

REPORT INFORMATION
  Report Type: 
  Country: None (occurrence: None)
  Receive Date: 20110128
  Receipt Date: 20110120
  Transmission Date: 20110831
  Serious: Yes (Other)
  Sender: FDA-Public Use
  Company Number: US-PURDUE-USA-2011-0062806

PATIENT
  Age: 54 Year
  Sex: Female
  Weight: 118.82 kg

DRUGS (6)
  1. STOOL SOFTENER [Concomitant]
     Indication: CONSTIPATION
     Dosage: UNK, PRN
  2. UNISOM                             /00000402/ [Concomitant]
     Indication: INSOMNIA
     Dosage: 25 MG, NOCTE
  3. KLONOPIN [Concomitant]
     Indication: PRODUCT USED FOR UNKNOWN INDICATION
     Dosage: 2 MG, TID
     Dates: start: 19820101
  4. ZANTAC [Concomitant]
     Indication: DYSPEPSIA
     Dosage: UNK, PRN
  5. OXYCONTIN [Suspect]
     Indication: ARTHRALGIA
     Dosage: UNK
     Dates: start: 20040101
  6. WARFARIN [Concomitant]
     Indication: PRODUCT USED FOR UNKNOWN INDICATION
     Dosage: UNK, SEE TEXT

REACTIONS (1)
  - DEEP VEIN THROMBOSIS [None]
